FAERS Safety Report 8029783-9 (Version None)
Quarter: 2011Q4

REPORT INFORMATION
  Report Type: 
  Country: None (occurrence: None)
  Receive Date: 20111130
  Receipt Date: 20110616
  Transmission Date: 20120403
  Serious: Yes (Hospitalization, Other)
  Sender: FDA-Public Use
  Company Number: US200910005209

PATIENT
  Age: 41 Year
  Sex: Male
  Weight: 99.8 kg

DRUGS (15)
  1. BYETTA [Suspect]
     Dates: start: 20070201, end: 20070601
  2. LANTUS [Concomitant]
  3. ASPIRIN [Concomitant]
  4. NOVOLOG [Concomitant]
  5. LIPITOR [Concomitant]
  6. VASOTEC /00574902/ (ENALAPRIL MALEATE) [Concomitant]
  7. METFORMIN HCL [Concomitant]
  8. CANDESARTAN CILEXETIL [Concomitant]
  9. METOPROLOL TARTRATE [Concomitant]
  10. ACTOS [Concomitant]
  11. EXENATIDE, DISPOSABLE DEVICE (EXENATIDE PEN ) [Concomitant]
  12. OMEPRAZOLE [Concomitant]
  13. CREON [Concomitant]
  14. LEXAPRO [Concomitant]
  15. TRICOR [Concomitant]

REACTIONS (2)
  - PANCREATITIS ACUTE [None]
  - OFF LABEL USE [None]
